FAERS Safety Report 11184856 (Version 1)
Quarter: 2015Q2

REPORT INFORMATION
  Report Type: Report from Study
  Country: ZA (occurrence: ZA)
  Receive Date: 20150612
  Receipt Date: 20150612
  Transmission Date: 20150821
  Serious: Yes (Life-Threatening, Other)
  Sender: FDA-Public Use
  Company Number: ZA-BAYER-2015-170844

PATIENT
  Age: 50 Year
  Sex: Male

DRUGS (9)
  1. FERROUS SULFATE [Concomitant]
     Active Substance: FERROUS SULFATE\FERROUS SULFATE, DRIED
  2. LANSOPRAZOLE. [Concomitant]
     Active Substance: LANSOPRAZOLE
  3. IPRAVENT [Concomitant]
  4. PARACETAMOL [Concomitant]
     Active Substance: ACETAMINOPHEN
  5. FOLIC ACID. [Concomitant]
     Active Substance: FOLIC ACID
  6. NEXAVAR [Suspect]
     Active Substance: SORAFENIB
     Indication: HEPATOCELLULAR CARCINOMA
     Dosage: DAILY DOSE 800 MG
     Route: 048
     Dates: start: 20141111, end: 20150505
  7. BUDEFLAM [Concomitant]
  8. ASTHAVENT [Concomitant]
  9. TRAMADOL [Concomitant]
     Active Substance: TRAMADOL

REACTIONS (5)
  - Skin discolouration [None]
  - Embolism [None]
  - Pain in extremity [None]
  - Hepatocellular carcinoma [None]
  - Abdominal pain [None]
